FAERS Safety Report 7375788-0 (Version None)
Quarter: 2011Q1

REPORT INFORMATION
  Report Type: 
  Country: None (occurrence: None)
  Receive Date: 20110325
  Receipt Date: 20110316
  Transmission Date: 20110831
  Serious: Yes (Hospitalization)
  Sender: FDA-Public Use
  Company Number: A0753397A

PATIENT
  Age: 57 Year
  Sex: Female
  Weight: 114.5 kg

DRUGS (6)
  1. MOBIC [Concomitant]
  2. GLIPIZIDE [Concomitant]
  3. VALIUM [Concomitant]
  4. GLUCOPHAGE [Concomitant]
  5. AVANDIA [Suspect]
     Dosage: 8MG PER DAY
     Route: 048
     Dates: start: 20030101, end: 20070101
  6. PREMPRO [Concomitant]

REACTIONS (4)
  - MYOCARDIAL INFARCTION [None]
  - CARDIAC FAILURE CONGESTIVE [None]
  - HEART INJURY [None]
  - CORONARY ARTERY DISEASE [None]
